FAERS Safety Report 7213114-8 (Version None)
Quarter: 2010Q4

REPORT INFORMATION
  Report Type: 
  Country: None (occurrence: None)
  Receive Date: 20101227
  Receipt Date: 20101211
  Transmission Date: 20110411
  Serious: Yes (Other)
  Sender: FDA-Public Use
  Company Number: AUR-APU-2010-02890

PATIENT
  Age: 64 Year
  Sex: Male

DRUGS (4)
  1. CEFUROXIME AXETIL [Suspect]
     Indication: PRODUCT USED FOR UNKNOWN INDICATION
     Dosage: 500MG-BID-2 WKS AGO
     Dates: start: 20101114
  2. VERAPAMIL [Concomitant]
  3. PRAVASTATIN [Concomitant]
  4. AMOXICILLIN [Concomitant]

REACTIONS (4)
  - COUGH [None]
  - DYSPHAGIA [None]
  - FOREIGN BODY [None]
  - FOREIGN BODY ASPIRATION [None]
